FAERS Safety Report 8846126 (Version 2)
Quarter: 2012Q4

REPORT INFORMATION
  Report Type: 
  Country: CA (occurrence: CA)
  Receive Date: 20121017
  Receipt Date: 20121217
  Transmission Date: 20130627
  Serious: Yes (Hospitalization)
  Sender: FDA-Public Use
  Company Number: CA-ELI_LILLY_AND_COMPANY-CA201210003100

PATIENT
  Age: 59 Year
  Sex: Female

DRUGS (14)
  1. FORTEO [Suspect]
     Indication: OSTEOPOROSIS
     Dosage: 20 ug, qd
     Route: 058
     Dates: start: 20100505, end: 20110901
  2. FORTEO [Suspect]
     Dosage: 20 ug, qd
     Route: 058
     Dates: start: 20111015, end: 20120801
  3. FORTEO [Suspect]
     Dosage: 20 ug, qd
     Route: 058
     Dates: start: 20120822, end: 20120916
  4. ZOLOFT [Concomitant]
     Dosage: UNK
  5. LOSARTAN [Concomitant]
     Dosage: UNK
  6. GABAPENTIN [Concomitant]
     Dosage: UNK
  7. MULTIVITAMIN [Concomitant]
     Dosage: UNK
  8. EVENING PRIMROSE OIL [Concomitant]
     Dosage: UNK
  9. CALCIUM [Concomitant]
     Dosage: UNK
  10. VITAMIN D [Concomitant]
     Dosage: UNK
  11. OMEGA III [Concomitant]
     Dosage: UNK
  12. CESAMET [Concomitant]
     Dosage: UNK
  13. CLONAZEPAM [Concomitant]
     Dosage: UNK
  14. METHADONE [Concomitant]
     Dosage: UNK

REACTIONS (2)
  - Detoxification [Recovered/Resolved]
  - Depressed mood [Recovered/Resolved]
